FAERS Safety Report 6050688-7 (Version None)
Quarter: 2009Q1

REPORT INFORMATION
  Report Type: 
  Country: None (occurrence: None)
  Receive Date: 20090121
  Receipt Date: 20090121
  Transmission Date: 20090719
  Serious: Yes (Other)
  Sender: FDA-Public Use
  Company Number: None

PATIENT
  Age: 55 Year
  Sex: Male
  Weight: 64.8644 kg

DRUGS (1)
  1. CELEBREX [Suspect]
     Indication: ARTHRITIS
     Dosage: 100MG  BID/PRN PO
     Route: 048
     Dates: start: 20040101, end: 20080116

REACTIONS (2)
  - RENAL FAILURE ACUTE [None]
  - RENAL PAPILLARY NECROSIS [None]
